FAERS Safety Report 20584856 (Version 1)
Quarter: 2022Q1

REPORT INFORMATION
  Report Type: Spontaneous
  Country: US (occurrence: US)
  Receive Date: 20220311
  Receipt Date: 20220311
  Transmission Date: 20220423
  Serious: Yes (Other)
  Sender: FDA-Public Use
  Company Number: US-NOVARTISTESTPH-NVSC2022US055829

PATIENT
  Age: 72 Year
  Sex: Male

DRUGS (12)
  1. DOCETAXEL [Suspect]
     Active Substance: DOCETAXEL
     Indication: Hormone-refractory prostate cancer
     Dosage: 50 MG/ M^2
     Route: 065
     Dates: start: 20210611, end: 20210623
  2. DOCETAXEL [Suspect]
     Active Substance: DOCETAXEL
     Dosage: 50 MG/ M^2
     Route: 065
     Dates: start: 20210707
  3. DOCETAXEL [Suspect]
     Active Substance: DOCETAXEL
     Dosage: 50 MG/ M^2
     Route: 065
     Dates: start: 20210804
  4. DOCETAXEL [Suspect]
     Active Substance: DOCETAXEL
     Dosage: 50 MG/ M^2
     Route: 065
     Dates: start: 20210825
  5. DOCETAXEL [Suspect]
     Active Substance: DOCETAXEL
     Dosage: 50 MG/ M^2
     Route: 065
     Dates: start: 20211006
  6. DOCETAXEL [Suspect]
     Active Substance: DOCETAXEL
     Dosage: 50 MG/ M^2
     Route: 065
     Dates: start: 20211020
  7. DOCETAXEL [Suspect]
     Active Substance: DOCETAXEL
     Dosage: 50 MG/ M^2
     Route: 065
     Dates: start: 20211123
  8. DOCETAXEL [Suspect]
     Active Substance: DOCETAXEL
     Dosage: 50 MG/ M^2
     Route: 065
     Dates: start: 20220119
  9. DOCETAXEL [Suspect]
     Active Substance: DOCETAXEL
     Dosage: 50 MG/ M^2
     Route: 065
     Dates: start: 20220209
  10. NEULASTA [Concomitant]
     Active Substance: PEGFILGRASTIM
     Indication: Product used for unknown indication
     Dosage: UNK
     Route: 065
     Dates: start: 20210707
  11. NEULASTA [Concomitant]
     Active Substance: PEGFILGRASTIM
     Dosage: UNK
     Route: 065
     Dates: start: 20211006, end: 20211123
  12. ELIGARD [Concomitant]
     Active Substance: LEUPROLIDE ACETATE
     Indication: Product used for unknown indication
     Dosage: UNK
     Route: 065
     Dates: end: 20210804

REACTIONS (1)
  - Neutropenia [Unknown]

NARRATIVE: CASE EVENT DATE: 20210623
